FAERS Safety Report 23612742 (Version 1)
Quarter: 2024Q1

REPORT INFORMATION
  Report Type: Spontaneous
  Country: US (occurrence: US)
  Receive Date: 20240308
  Receipt Date: 20240308
  Transmission Date: 20240410
  Serious: No
  Sender: FDA-Public Use
  Company Number: US-PFIZER INC-2017452324

PATIENT
  Age: 57 Year
  Sex: Female

DRUGS (8)
  1. DOCETAXEL [Suspect]
     Active Substance: DOCETAXEL\DOCETAXEL ANHYDROUS
     Indication: Triple negative breast cancer
     Dosage: UNK, CYCLIC (08 CYCLES, EVERY TWO WEEKS)
     Dates: start: 20130218, end: 20130401
  2. TAXOTERE [Suspect]
     Active Substance: DOCETAXEL
     Indication: Triple negative breast cancer
     Dosage: UNK, CYCLIC (08 CYCLES, EVERY TWO WEEKS)
     Dates: start: 20130218, end: 20130401
  3. NEOSAR [Concomitant]
     Active Substance: CYCLOPHOSPHAMIDE
     Indication: Chemotherapy
     Dosage: UNK
  4. ADRIAMYCIN [Concomitant]
     Active Substance: DOXORUBICIN HYDROCHLORIDE
     Indication: Chemotherapy
     Dosage: UNK, 4 CHEMO
  5. DOXIL [Concomitant]
     Active Substance: DOXORUBICIN HYDROCHLORIDE
     Indication: Chemotherapy
     Dosage: UNK
  6. CYTOXAN [Concomitant]
     Active Substance: CYCLOPHOSPHAMIDE
     Indication: Chemotherapy
     Dosage: UNK, 4 CHEMO
  7. CORLANOR [Concomitant]
     Active Substance: IVABRADINE HYDROCHLORIDE
     Dosage: UNK
  8. FUROSEMIDE [Concomitant]
     Active Substance: FUROSEMIDE
     Dosage: UNK

REACTIONS (7)
  - Alopecia [Not Recovered/Not Resolved]
  - Hair disorder [Not Recovered/Not Resolved]
  - Hair texture abnormal [Not Recovered/Not Resolved]
  - Hair colour changes [Not Recovered/Not Resolved]
  - Anxiety [Unknown]
  - Depression [Unknown]
  - Stress [Unknown]

NARRATIVE: CASE EVENT DATE: 20130411
